FAERS Safety Report 23295590 (Version 4)
Quarter: 2024Q1

REPORT INFORMATION
  Report Type: Spontaneous
  Country: US (occurrence: US)
  Receive Date: 20231214
  Receipt Date: 20240207
  Transmission Date: 20240409
  Serious: No
  Sender: FDA-Public Use
  Company Number: US-PFIZER INC-202300414851

PATIENT
  Age: 16 Year
  Sex: Male
  Weight: 34.467 kg

DRUGS (2)
  1. GENOTROPIN [Suspect]
     Active Substance: SOMATROPIN
     Indication: Noonan syndrome
     Dosage: 2 MILLIGRAMS, DAILY
  2. GENOTROPIN [Suspect]
     Active Substance: SOMATROPIN
     Dosage: UNK

REACTIONS (3)
  - Off label use [Unknown]
  - Device issue [Unknown]
  - Device leakage [Unknown]

NARRATIVE: CASE EVENT DATE: 20231101
